FAERS Safety Report 17367923 (Version 1)
Quarter: 2020Q1

REPORT INFORMATION
  Report Type: Spontaneous
  Country: KR (occurrence: KR)
  Receive Date: 20200204
  Receipt Date: 20200204
  Transmission Date: 20200409
  Serious: Yes (Death, Other)
  Sender: FDA-Public Use
  Company Number: NVSC2020KR027208

PATIENT
  Age: 43 Year
  Sex: Male

DRUGS (4)
  1. METHYLPREDNISOLONE. [Suspect]
     Active Substance: METHYLPREDNISOLONE
     Dosage: 30 MG, QD EVERY 4 DAYS
     Route: 065
  2. METHYLPREDNISOLONE. [Suspect]
     Active Substance: METHYLPREDNISOLONE
     Indication: HEPATITIS ALCOHOLIC
     Dosage: 40 MG, QD
     Route: 065
  3. VITAMIN B12 [Concomitant]
     Active Substance: CYANOCOBALAMIN
     Indication: PRODUCT USED FOR UNKNOWN INDICATION
     Route: 065
  4. THIAMINE. [Concomitant]
     Active Substance: THIAMINE
     Indication: PRODUCT USED FOR UNKNOWN INDICATION
     Dosage: UNK
     Route: 065

REACTIONS (11)
  - Pneumocystis jirovecii pneumonia [Fatal]
  - Hypoxia [Fatal]
  - Product use in unapproved indication [Unknown]
  - Disseminated intravascular coagulation [Fatal]
  - Dyspnoea exertional [Fatal]
  - Multiple organ dysfunction syndrome [Fatal]
  - Pollakiuria [Unknown]
  - Haemoptysis [Fatal]
  - Productive cough [Fatal]
  - Proteus infection [Unknown]
  - Pyrexia [Unknown]
